FAERS Safety Report 19517019 (Version 2)
Quarter: 2021Q3

REPORT INFORMATION
  Report Type: Report from Study
  Country: None (occurrence: CA)
  Receive Date: 20210711
  Receipt Date: 20210725
  Transmission Date: 20211014
  Serious: Yes (Death, Hospitalization)
  Sender: FDA-Public Use
  Company Number: CA-ABBVIE-21K-028-3982777-00

PATIENT
  Sex: Female

DRUGS (1)
  1. HUMIRA [Suspect]
     Active Substance: ADALIMUMAB
     Indication: CROHN^S DISEASE
     Route: 058
     Dates: start: 20210614, end: 20210628

REACTIONS (2)
  - Palliative care [Unknown]
  - Pelvic fracture [Fatal]

NARRATIVE: CASE EVENT DATE: 2021
